APPROVED DRUG PRODUCT: PROCHLORPERAZINE MALEATE
Active Ingredient: PROCHLORPERAZINE MALEATE
Strength: EQ 10MG BASE
Dosage Form/Route: TABLET;ORAL
Application: A217478 | Product #002 | TE Code: AB
Applicant: BIONPHARMA INC
Approved: Apr 4, 2023 | RLD: No | RS: No | Type: RX